FAERS Safety Report 13766611 (Version 4)
Quarter: 2018Q1

REPORT INFORMATION
  Report Type: Spontaneous
  Country: JP (occurrence: JP)
  Receive Date: 20170719
  Receipt Date: 20180223
  Transmission Date: 20180508
  Serious: Yes (Other)
  Sender: FDA-Public Use
  Company Number: JP-ASTRAZENECA-2017SE72915

PATIENT
  Age: 27356 Day
  Sex: Female
  Weight: 50 kg

DRUGS (6)
  1. MUCODYNE [Concomitant]
     Active Substance: CARBOCYSTEINE
     Indication: ASTHMA
     Route: 048
  2. TAGRISSO [Suspect]
     Active Substance: OSIMERTINIB
     Indication: NON-SMALL CELL LUNG CANCER
     Route: 048
     Dates: start: 20170704, end: 20170711
  3. SHAKUYAKUKANZOTO [Concomitant]
     Active Substance: HERBALS
     Indication: MUSCLE SPASMS
     Route: 048
  4. TAGRISSO [Suspect]
     Active Substance: OSIMERTINIB
     Indication: NON-SMALL CELL LUNG CANCER
     Route: 048
     Dates: start: 20170803
  5. SINGULAIR [Concomitant]
     Active Substance: MONTELUKAST SODIUM
     Indication: ASTHMA
     Route: 048
  6. JANUVIA [Concomitant]
     Active Substance: SITAGLIPTIN PHOSPHATE
     Indication: DIABETES MELLITUS
     Route: 048

REACTIONS (1)
  - Hyperkalaemia [Recovering/Resolving]

NARRATIVE: CASE EVENT DATE: 20170707
